FAERS Safety Report 12425193 (Version 1)
Quarter: 2016Q2

REPORT INFORMATION
  Report Type: Spontaneous
  Country: FR (occurrence: FR)
  Receive Date: 20160601
  Receipt Date: 20160601
  Transmission Date: 20160815
  Serious: Yes (Hospitalization)
  Sender: FDA-Public Use
  Company Number: FR-009507513-1605FRA014248

PATIENT
  Age: 72 Year
  Sex: Female

DRUGS (3)
  1. LEVOTHYROX [Concomitant]
     Active Substance: LEVOTHYROXINE
     Indication: HYPOTHYROIDISM
     Dosage: UNK
     Route: 065
  2. ORGARAN [Suspect]
     Active Substance: DANAPAROID SODIUM
     Indication: HEPARIN-INDUCED THROMBOCYTOPENIA
     Dosage: DAILY DOSE: 750 IU ANTI XA/0.6 ML AMPOULE, INITIATED AT 200 IU/H
     Route: 042
     Dates: start: 20160314, end: 20160318
  3. SINTROM [Suspect]
     Active Substance: ACENOCOUMAROL
     Indication: PRODUCT USED FOR UNKNOWN INDICATION
     Dosage: 4 MG, 1 IN 1 D
     Route: 048
     Dates: start: 20160316, end: 20160318

REACTIONS (6)
  - International normalised ratio increased [Recovered/Resolved]
  - Haemorrhagic anaemia [Recovered/Resolved]
  - Melaena [Recovered/Resolved]
  - Pericardial effusion [Recovered/Resolved]
  - Duodenal ulcer haemorrhage [Recovered/Resolved]
  - Haemothorax [Recovered/Resolved]

NARRATIVE: CASE EVENT DATE: 20160318
